FAERS Safety Report 6209688-6 (Version None)
Quarter: 2009Q2

REPORT INFORMATION
  Report Type: 
  Country: None (occurrence: None)
  Receive Date: 20090601
  Receipt Date: 20090528
  Transmission Date: 20091009
  Serious: Yes (Other)
  Sender: FDA-Public Use
  Company Number: GB-ASTRAZENECA-2009AC01578

PATIENT
  Age: 34 Year
  Sex: Female

DRUGS (7)
  1. BUPIVACAINE [Suspect]
     Indication: EPIDURAL ANAESTHESIA
     Route: 008
  2. BUPIVACAINE [Suspect]
     Route: 042
  3. BUPIVACAINE [Suspect]
     Route: 008
  4. FENTANYL [Suspect]
     Indication: EPIDURAL ANAESTHESIA
     Dosage: 2 UG/ML
     Route: 008
  5. FENTANYL [Suspect]
     Route: 042
  6. FENTANYL [Suspect]
     Route: 008
  7. OXYTOCIN [Concomitant]
     Route: 042

REACTIONS (3)
  - HORNER'S SYNDROME [None]
  - HYPOGLOSSAL NERVE DISORDER [None]
  - TRIGEMINAL NERVE DISORDER [None]
